FAERS Safety Report 21447934 (Version 1)
Quarter: 2022Q4

REPORT INFORMATION
  Report Type: Spontaneous
  Country: US (occurrence: US)
  Receive Date: 20221012
  Receipt Date: 20221012
  Transmission Date: 20230113
  Serious: No
  Sender: FDA-Public Use
  Company Number: US-JNJFOC-20221012468

PATIENT
  Age: 36 Year
  Sex: Female

DRUGS (3)
  1. ZYRTEC [Suspect]
     Active Substance: CETIRIZINE HYDROCHLORIDE
     Indication: Rash
     Route: 065
     Dates: start: 20220924
  2. BENADRYL ITCH STOPPING GEL MAXIMUM STRENGTH [Concomitant]
     Indication: Exposure to toxic agent
     Route: 061
     Dates: start: 20220823, end: 20220827
  3. PREDNISONE [Concomitant]
     Active Substance: PREDNISONE
     Indication: Exposure to toxic agent
     Route: 065
     Dates: start: 2022

REACTIONS (2)
  - Rash [Not Recovered/Not Resolved]
  - Off label use [Unknown]

NARRATIVE: CASE EVENT DATE: 20220924
